FAERS Safety Report 11693458 (Version 1)
Quarter: 2015Q4

REPORT INFORMATION
  Report Type: Spontaneous
  Country: None (occurrence: None)
  Receive Date: 20151102
  Receipt Date: 20151102
  Transmission Date: 20160304
  Serious: Yes (Other)
  Sender: FDA-Public Use
  Company Number: None

PATIENT
  Age: 23 Year
  Sex: Female
  Weight: 48 kg

DRUGS (2)
  1. YASMIN [Suspect]
     Active Substance: DROSPIRENONE\ETHINYL ESTRADIOL
     Indication: POLYCYSTIC OVARIES
     Dosage: 1 PILL
     Route: 048
  2. IRON SUPPLEMENTS [Concomitant]
     Active Substance: IRON

REACTIONS (1)
  - Hair texture abnormal [None]

NARRATIVE: CASE EVENT DATE: 20151030
